FAERS Safety Report 15988652 (Version 1)
Quarter: 2019Q1

REPORT INFORMATION
  Report Type: Report from Study
  Country: ES (occurrence: ES)
  Receive Date: 20190221
  Receipt Date: 20190221
  Transmission Date: 20190418
  Serious: Yes (Hospitalization)
  Sender: FDA-Public Use
  Company Number: ES-ACCORD-108338

PATIENT
  Age: 42 Year
  Sex: Female

DRUGS (6)
  1. VALGANCICLOVIR/VALGANCICLOVIR HYDROCHLORIDE [Concomitant]
     Dosage: 450 MG 1C/24H AT BREAKFAST
     Dates: start: 20171010
  2. ACETYLSALICYLIC ACID [Concomitant]
     Active Substance: ASPIRIN
     Dosage: 0-1-0
     Route: 048
     Dates: start: 20171010, end: 20171124
  3. PREDNISONE. [Concomitant]
     Active Substance: PREDNISONE
     Dosage: SP
     Route: 048
     Dates: start: 20170928
  4. MYCOPHENOLIC ACID. [Suspect]
     Active Substance: MYCOPHENOLIC ACID
     Indication: HEART TRANSPLANT
     Dosage: SP
     Route: 048
     Dates: start: 20170928, end: 20171124
  5. SEPTRIN FORTE [Concomitant]
     Active Substance: SULFAMETHOXAZOLE\TRIMETHOPRIM
     Dosage: 800/160 MG, 1C/48 H IN FOOD
     Route: 048
     Dates: start: 20171010
  6. TACROLIMUS. [Suspect]
     Active Substance: TACROLIMUS
     Indication: HEART TRANSPLANT
     Dosage: SP
     Route: 048
     Dates: start: 20170928, end: 20171124

REACTIONS (1)
  - Pancytopenia [Recovered/Resolved]

NARRATIVE: CASE EVENT DATE: 20171124
